FAERS Safety Report 6854976-3 (Version None)
Quarter: 2010Q3

REPORT INFORMATION
  Report Type: 
  Country: None (occurrence: None)
  Receive Date: 20100717
  Receipt Date: 20080310
  Transmission Date: 20110219
  Serious: No
  Sender: FDA-Public Use
  Company Number: US-PFIZER INC-2007106220

PATIENT
  Sex: Female
  Weight: 51.4 kg

DRUGS (4)
  1. CHANTIX [Suspect]
     Indication: SMOKING CESSATION THERAPY
     Dates: start: 20071101, end: 20071207
  2. FEMARA [Concomitant]
  3. METOPROLOL [Concomitant]
  4. VITAMINS [Concomitant]

REACTIONS (4)
  - DEPRESSION [None]
  - MALAISE [None]
  - NIGHTMARE [None]
  - THINKING ABNORMAL [None]
